FAERS Safety Report 23134766 (Version 2)
Quarter: 2023Q4

REPORT INFORMATION
  Report Type: Spontaneous
  Country: US (occurrence: US)
  Receive Date: 20231101
  Receipt Date: 20231108
  Transmission Date: 20240109
  Serious: No
  Sender: FDA-Public Use
  Company Number: US-OPELLA-2023OHG011120

PATIENT
  Sex: Female

DRUGS (1)
  1. ICY HOT ADVANCED RELIEF (CAMPHOR (SYNTHETIC)\MENTHOL) [Suspect]
     Active Substance: CAMPHOR (SYNTHETIC)\MENTHOL
     Dosage: DOSAGE STRENGTH:6,27 G; 9,12 G/57 G

REACTIONS (2)
  - Eye irritation [Unknown]
  - Lacrimation increased [Unknown]
